FAERS Safety Report 9306074 (Version 1)
Quarter: 2013Q2

REPORT INFORMATION
  Report Type: Spontaneous
  Country: US (occurrence: US)
  Receive Date: 20130523
  Receipt Date: 20130523
  Transmission Date: 20140414
  Serious: No
  Sender: FDA-Public Use
  Company Number: US-PFIZER INC-2013154477

PATIENT
  Age: 65 Year
  Sex: Female
  Weight: 56.69 kg

DRUGS (2)
  1. CADUET [Suspect]
     Indication: HYPERTENSION
     Dosage: [AMLODIPINE BESILATE 5 MG]/ [ATORVASTATIN CALCIUM 20 MG] DAILY AT NIGHT
     Dates: end: 201305
  2. CADUET [Suspect]
     Indication: BLOOD CHOLESTEROL INCREASED
     Dosage: [AMLODIPINE BESILATE 5 MG]/ [ATORVASTATIN CALCIUM 20 MG] DAILY IN THE MORNING
     Dates: start: 201305

REACTIONS (4)
  - Fall [Unknown]
  - Pain in extremity [Recovering/Resolving]
  - Sleep disorder [Unknown]
  - Yawning [Unknown]
